FAERS Safety Report 24909693 (Version 1)
Quarter: 2025Q1

REPORT INFORMATION
  Report Type: Spontaneous
  Country: US (occurrence: US)
  Receive Date: 20250131
  Receipt Date: 20250131
  Transmission Date: 20250408
  Serious: No
  Sender: PERRIGO
  Company Number: US-PERRIGO-24US003011

PATIENT
  Age: 79 Year
  Sex: Male
  Weight: 90.703 kg

DRUGS (2)
  1. CETIRIZINE HYDROCHLORIDE [Suspect]
     Active Substance: CETIRIZINE HYDROCHLORIDE
     Indication: Seasonal allergy
     Dosage: 10 MG, QD
     Route: 048
     Dates: start: 20240324
  2. ZALEPLON [Concomitant]
     Active Substance: ZALEPLON
     Indication: Sleep disorder
     Route: 065

REACTIONS (3)
  - Lethargy [Recovered/Resolved]
  - Product administered to patient of inappropriate age [Unknown]
  - Wrong technique in product usage process [Unknown]

NARRATIVE: CASE EVENT DATE: 20240324
